FAERS Safety Report 7103374-6 (Version None)
Quarter: 2010Q4

REPORT INFORMATION
  Report Type: 
  Country: None (occurrence: None)
  Receive Date: 20101115
  Receipt Date: 20090506
  Transmission Date: 20110411
  Serious: No
  Sender: FDA-Public Use
  Company Number: US-KINGPHARMUSA00001-K200900557

PATIENT
  Sex: Female
  Weight: 49.433 kg

DRUGS (2)
  1. SONATA [Suspect]
     Indication: SLEEP DISORDER
     Dosage: 5 MG, QHS, PRN
     Route: 048
     Dates: start: 20080721
  2. VITAMINS [Concomitant]
     Dosage: UNK

REACTIONS (2)
  - DRUG INEFFECTIVE [None]
  - POOR QUALITY SLEEP [None]
